FAERS Safety Report 13030714 (Version 1)
Quarter: 2016Q4

REPORT INFORMATION
  Report Type: Spontaneous
  Country: GB (occurrence: GB)
  Receive Date: 20161215
  Receipt Date: 20161215
  Transmission Date: 20170207
  Serious: Yes (Other)
  Sender: FDA-Public Use
  Company Number: GB-MYLANLABS-2016M1055083

PATIENT

DRUGS (2)
  1. SIMVASTATIN MYLAN [Suspect]
     Active Substance: SIMVASTATIN
     Indication: BLOOD CHOLESTEROL INCREASED
     Dosage: 40 MG, UNK
     Route: 048
     Dates: start: 20130101
  2. AMLODIPINE MYLAN [Suspect]
     Active Substance: AMLODIPINE BESYLATE
     Indication: HYPERTENSION
     Dosage: 5 MG, UNK
     Route: 048
     Dates: start: 20161031, end: 20161104

REACTIONS (5)
  - Blood urine present [Unknown]
  - Enuresis [Unknown]
  - Renal disorder [Unknown]
  - Protein urine present [Unknown]
  - Renal pain [Recovered/Resolved]
